FAERS Safety Report 7109215-5 (Version None)
Quarter: 2010Q4

REPORT INFORMATION
  Report Type: 
  Country: None (occurrence: None)
  Receive Date: 20101117
  Receipt Date: 20101105
  Transmission Date: 20110411
  Serious: Yes (Hospitalization, Other)
  Sender: FDA-Public Use
  Company Number: ES-ELI_LILLY_AND_COMPANY-ES201011001751

PATIENT
  Sex: Female
  Weight: 80 kg

DRUGS (5)
  1. FORTEO [Suspect]
     Indication: OSTEOPOROSIS
     Dosage: 20 UG, DAILY (1/D)
     Route: 058
     Dates: start: 20101029
  2. FLECAINIDE ACETATE [Concomitant]
     Indication: ARRHYTHMIA
     Dosage: 1CP/12H
     Route: 048
  3. SEGURIL [Concomitant]
     Indication: HYPERTENSION
     Dosage: 1CP/24H
     Route: 048
  4. VENTOLIN [Concomitant]
     Indication: BRONCHITIS CHRONIC
     Dosage: 1 PUFF EVERY 6 HOURS
     Route: 065
  5. SPIRIVA [Concomitant]
     Indication: BRONCHITIS CHRONIC
     Dosage: 1 PUFF EVERY 8 HOURS

REACTIONS (6)
  - ABDOMINAL DISCOMFORT [None]
  - ASTHENIA [None]
  - CHEST X-RAY ABNORMAL [None]
  - HYPERTENSION [None]
  - HYPOAESTHESIA [None]
  - HYPOAESTHESIA FACIAL [None]
